FAERS Safety Report 22661659 (Version 1)
Quarter: 2023Q2

REPORT INFORMATION
  Report Type: Spontaneous
  Country: CN (occurrence: CN)
  Receive Date: 20230630
  Receipt Date: 20230630
  Transmission Date: 20230722
  Serious: Yes (Hospitalization, Other)
  Sender: FDA-Public Use
  Company Number: CN-009507513-2306CHN012793

PATIENT
  Weight: 34 kg

DRUGS (2)
  1. CILASTATIN SODIUM\IMIPENEM [Suspect]
     Active Substance: CILASTATIN SODIUM\IMIPENEM
     Indication: Pneumonia
     Dosage: 0.5G BID
     Route: 041
     Dates: start: 20230330, end: 20230403
  2. SODIUM CHLORIDE [Concomitant]
     Active Substance: SODIUM CHLORIDE
     Dosage: 100 MILLILITER, BID

REACTIONS (8)
  - Unresponsive to stimuli [Recovering/Resolving]
  - Craniocerebral injury [Unknown]
  - Seizure [Recovering/Resolving]
  - Trismus [Recovering/Resolving]
  - Muscle rigidity [Recovering/Resolving]
  - Oxygen saturation decreased [Recovering/Resolving]
  - Cyanosis [Recovering/Resolving]
  - Tremor [Recovering/Resolving]

NARRATIVE: CASE EVENT DATE: 20230101
